FAERS Safety Report 17548037 (Version 1)
Quarter: 2020Q1

REPORT INFORMATION
  Report Type: Spontaneous
  Country: US (occurrence: US)
  Receive Date: 20200317
  Receipt Date: 20200317
  Transmission Date: 20200409
  Serious: Yes (Other)
  Sender: FDA-Public Use
  Company Number: US-ROCHE-2567195

PATIENT
  Age: 79 Year
  Sex: Male
  Weight: 76.27 kg

DRUGS (2)
  1. ACTEMRA [Suspect]
     Active Substance: TOCILIZUMAB
     Indication: TEMPORAL ARTERITIS
     Dosage: ACTEMRA 162MG/0.9ML INJECTED EVERY WEEK ;ONGOING: YES
     Route: 058
     Dates: start: 201912
  2. BASAGLAR [Concomitant]
     Active Substance: INSULIN GLARGINE
     Indication: DIABETES MELLITUS
     Dosage: INJECT 20 UNITS PER DAY ;ONGOING: YES
     Route: 065

REACTIONS (2)
  - Diabetes mellitus [Unknown]
  - Burning sensation [Not Recovered/Not Resolved]

NARRATIVE: CASE EVENT DATE: 201912
